FAERS Safety Report 19584305 (Version 3)
Quarter: 2022Q4

REPORT INFORMATION
  Report Type: Report from Study
  Country: CN (occurrence: None)
  Receive Date: 20210720
  Receipt Date: 20221017
  Transmission Date: 20230113
  Serious: Yes (Life-Threatening, Hospitalization)
  Sender: FDA-Public Use
  Company Number: CN-ROCHE-2836254

PATIENT
  Age: 2 Year
  Sex: Female
  Weight: 14.1 kg

DRUGS (11)
  1. TOCILIZUMAB [Suspect]
     Active Substance: TOCILIZUMAB
     Indication: Still^s disease
     Route: 042
     Dates: start: 20210513, end: 20210608
  2. TOCILIZUMAB [Suspect]
     Active Substance: TOCILIZUMAB
     Route: 042
     Dates: start: 20210705, end: 20210705
  3. TOCILIZUMAB [Suspect]
     Active Substance: TOCILIZUMAB
     Route: 042
     Dates: start: 20210605
  4. METHOTREXATE [Concomitant]
     Active Substance: METHOTREXATE
     Dates: start: 20201116
  5. METHOTREXATE [Concomitant]
     Active Substance: METHOTREXATE
     Dates: start: 20210707
  6. FOLATE SODIUM [Concomitant]
     Active Substance: FOLATE SODIUM
     Dates: start: 20210123
  7. NAPROXEN [Concomitant]
     Active Substance: NAPROXEN
     Dates: start: 20201101
  8. CALCIUM [Concomitant]
     Active Substance: CALCIUM
     Dosage: 100 UNITS PER KG
     Dates: start: 20210119
  9. PREDNISONE [Concomitant]
     Active Substance: PREDNISONE
     Dates: start: 20210312
  10. PREDNISONE [Concomitant]
     Active Substance: PREDNISONE
     Dates: start: 20210619
  11. PREDNISONE [Concomitant]
     Active Substance: PREDNISONE
     Dates: start: 20210707

REACTIONS (6)
  - Chills [Recovered/Resolved]
  - Pyrexia [Recovered/Resolved]
  - Vomiting [Recovered/Resolved]
  - Seasonal allergy [Not Recovered/Not Resolved]
  - Infection [Not Recovered/Not Resolved]
  - Medication error [Unknown]

NARRATIVE: CASE EVENT DATE: 20210521
